FAERS Safety Report 9323735 (Version 1)
Quarter: 2013Q2

REPORT INFORMATION
  Report Type: Report from Study
  Country: CF (occurrence: CF)
  Receive Date: 20130603
  Receipt Date: 20130603
  Transmission Date: 20140414
  Serious: Yes (Death, Other)
  Sender: FDA-Public Use
  Company Number: PHHY2013CF055375

PATIENT
  Sex: Male

DRUGS (1)
  1. GLIVEC [Suspect]
     Indication: CHRONIC MYELOID LEUKAEMIA
     Dosage: 400 MG

REACTIONS (2)
  - Death [Fatal]
  - Varicella [Unknown]
